FAERS Safety Report 10874221 (Version 1)
Quarter: 2015Q1

REPORT INFORMATION
  Report Type: Spontaneous
  Country: US (occurrence: US)
  Receive Date: 20150227
  Receipt Date: 20150227
  Transmission Date: 20150721
  Serious: Yes (Other)
  Sender: FDA-Public Use
  Company Number: US-009507513-1502USA012321

PATIENT
  Sex: Male

DRUGS (1)
  1. ZOCOR [Suspect]
     Active Substance: SIMVASTATIN
     Route: 048

REACTIONS (7)
  - Myalgia [Unknown]
  - Injury [Unknown]
  - Nail discolouration [Unknown]
  - Pleural effusion [Unknown]
  - Hypersensitivity [Unknown]
  - Nail growth abnormal [Unknown]
  - Adverse event [Unknown]
